FAERS Safety Report 10273223 (Version 1)
Quarter: 2014Q3

REPORT INFORMATION
  Report Type: Spontaneous
  Country: TR (occurrence: TR)
  Receive Date: 20140702
  Receipt Date: 20140702
  Transmission Date: 20150326
  Serious: Yes (Hospitalization)
  Sender: FDA-Public Use
  Company Number: PHHY2014TR078845

PATIENT
  Age: 45 Year
  Sex: Male

DRUGS (1)
  1. METHOTREXATE [Suspect]
     Active Substance: METHOTREXATE
     Route: 030

REACTIONS (14)
  - Erythema [Recovered/Resolved]
  - Incorrect dose administered [Recovered/Resolved]
  - Skin lesion [Recovered/Resolved]
  - Drug prescribing error [Recovered/Resolved]
  - Psoriasis [Recovered/Resolved]
  - Stomatitis [Recovered/Resolved]
  - Hepatic enzyme increased [Recovered/Resolved]
  - Skin exfoliation [Recovered/Resolved]
  - Pruritus [Recovered/Resolved]
  - Toxicity to various agents [Recovered/Resolved]
  - Rash pustular [Recovered/Resolved]
  - Pyrexia [Recovered/Resolved]
  - Pain [Recovered/Resolved]
  - Oral disorder [Recovered/Resolved]
